FAERS Safety Report 5281099-X (Version None)
Quarter: 2007Q1

REPORT INFORMATION
  Report Type: 
  Country: None (occurrence: None)
  Receive Date: 20070323
  Receipt Date: 20070314
  Transmission Date: 20070707
  Serious: Yes (Life-Threatening)
  Sender: FDA-Public Use
  Company Number: 2007S1000054

PATIENT
  Age: 8 Day
  Sex: Male

DRUGS (7)
  1. NITRIC OXIDE [Suspect]
     Indication: NEONATAL RESPIRATORY DISTRESS SYNDROME PROPHYLAXIS
     Dosage: 5 PPM; CONT INH
     Route: 055
     Dates: start: 20070225
  2. AMPICILLIN [Concomitant]
  3. AMIKACIN [Concomitant]
  4. ERYTHROPOIETINE (NO PREF. NAME) [Concomitant]
  5. THEOPHYLLINE [Concomitant]
  6. RED BLOOD (NO PREF. NAME) [Concomitant]
  7. IBUPROFEN [Concomitant]

REACTIONS (15)
  - ABDOMINAL DISTENSION [None]
  - BREECH PRESENTATION [None]
  - CARDIOMEGALY [None]
  - HYPERGLYCAEMIA [None]
  - HYPERNATRAEMIA [None]
  - INFANTILE APNOEIC ATTACK [None]
  - METABOLIC ACIDOSIS [None]
  - NEONATAL DISORDER [None]
  - NEONATAL INFECTION [None]
  - NEONATAL RESPIRATORY DISTRESS SYNDROME [None]
  - PATENT DUCTUS ARTERIOSUS [None]
  - PREMATURE BABY [None]
  - PULMONARY OEDEMA [None]
  - SLEEP APNOEA SYNDROME [None]
  - WEIGHT DECREASED [None]
